FAERS Safety Report 9068397 (Version 1)
Quarter: 2013Q1

REPORT INFORMATION
  Report Type: Spontaneous
  Country: US (occurrence: None)
  Receive Date: 20130212
  Receipt Date: 20130212
  Transmission Date: 20140127
  Serious: Yes (Life-Threatening, Hospitalization, Disabling)
  Sender: FDA-Public Use
  Company Number: None

PATIENT
  Age: 48 Year
  Sex: Female
  Weight: 72.58 kg

DRUGS (2)
  1. TRAZODONE [Suspect]
     Indication: INSOMNIA
     Dosage: 50MG DAILY PO
     Route: 048
     Dates: start: 20120503, end: 20120518
  2. TRAZODONE [Suspect]
     Indication: DEPRESSION
     Dosage: 50MG DAILY PO
     Route: 048
     Dates: start: 20120503, end: 20120518

REACTIONS (5)
  - Dry mouth [None]
  - Polydipsia [None]
  - Water intoxication [None]
  - Blood sodium decreased [None]
  - Tinnitus [None]
